FAERS Safety Report 8428333 (Version 3)
Quarter: 2012Q4

REPORT INFORMATION
  Report Type: 
  Country: US (occurrence: US)
  Receive Date: 20120227
  Receipt Date: 20120907
  Transmission Date: 20130627
  Serious: Yes (Hospitalization, Other)
  Sender: FDA-Public Use
  Company Number: US-BAYER-2012-017467

PATIENT
  Age: 17 Year
  Sex: Female
  Weight: 90.7 kg

DRUGS (6)
  1. YAZ [Suspect]
     Indication: CONTRACEPTION
     Dosage: UNK
     Dates: start: 20110307, end: 20110529
  2. BUSPAR [Concomitant]
     Dosage: 15 mg, UNK
  3. CELEXA [Concomitant]
     Dosage: 40 mg, UNK
  4. ASA [Concomitant]
     Indication: PAIN IN EXTREMITY
  5. DEPO PROVERA [Concomitant]
  6. LORTAB [Concomitant]
     Dosage: 5 mg, UNK

REACTIONS (9)
  - Pulmonary embolism [None]
  - Deep vein thrombosis [None]
  - Traumatic lung injury [None]
  - Pulmonary infarction [None]
  - Emotional distress [None]
  - Chest pain [None]
  - Dyspnoea [None]
  - Pain in extremity [None]
  - Anxiety [None]
